FAERS Safety Report 9802944 (Version 1)
Quarter: 2014Q1

REPORT INFORMATION
  Report Type: Spontaneous
  Country: GB (occurrence: None)
  Receive Date: 20140102
  Receipt Date: 20140102
  Transmission Date: 20141002
  Serious: Yes (Other)
  Sender: FDA-Public Use
  Company Number: AUR-APL-2013-10852

PATIENT
  Age: 16 Year
  Sex: Female

DRUGS (1)
  1. LAMOTRIGINE (LAMOTRIGINE) [Suspect]
     Indication: EPILEPSY
     Dosage: 25MG (25MG, 1 IN 1D) ORAL
     Route: 048
     Dates: start: 20121125

REACTIONS (6)
  - Rash generalised [None]
  - Urinary tract infection [None]
  - Pyrexia [None]
  - Sepsis [None]
  - Pancytopenia [None]
  - Dermatitis allergic [None]
